FAERS Safety Report 10141978 (Version 2)
Quarter: 2014Q2

REPORT INFORMATION
  Report Type: Spontaneous
  Country: US (occurrence: US)
  Receive Date: 20140429
  Receipt Date: 20140603
  Transmission Date: 20141212
  Serious: Yes (Hospitalization, Disabling, Other)
  Sender: FDA-Public Use
  Company Number: US-ACORDA-ACO_103095_2014

PATIENT
  Sex: Female
  Weight: 68.27 kg

DRUGS (6)
  1. AMPYRA [Suspect]
     Indication: PRODUCT USED FOR UNKNOWN INDICATION
     Dosage: 10 MG, BID
     Route: 065
  2. AVONEX [Concomitant]
     Indication: PRODUCT USED FOR UNKNOWN INDICATION
     Dosage: 30 ?G, UNK
     Route: 065
  3. BACLOFEN [Concomitant]
     Indication: PRODUCT USED FOR UNKNOWN INDICATION
     Dosage: 10 MG, BID
     Route: 065
  4. FUROSEMIDE [Concomitant]
     Indication: PRODUCT USED FOR UNKNOWN INDICATION
     Dosage: 20 MG, QD
     Route: 065
  5. LOSARTAN POTASSIUM [Concomitant]
     Indication: PRODUCT USED FOR UNKNOWN INDICATION
     Dosage: 25 MG, QD
     Route: 065
  6. WARFARIN SODIUM [Concomitant]
     Indication: PRODUCT USED FOR UNKNOWN INDICATION
     Dosage: 5 MG, UNK
     Route: 065

REACTIONS (24)
  - Incoherent [Not Recovered/Not Resolved]
  - Deep vein thrombosis [Unknown]
  - Embolism [Unknown]
  - Abasia [Unknown]
  - Amnesia [Unknown]
  - Secondary progressive multiple sclerosis [Unknown]
  - Oedema peripheral [Unknown]
  - Erythema [Unknown]
  - Diplopia [Unknown]
  - Vision blurred [Unknown]
  - Muscular weakness [Unknown]
  - Disturbance in attention [Unknown]
  - Sensory loss [Unknown]
  - Hypotonia [Unknown]
  - Areflexia [Unknown]
  - Muscle spasms [Unknown]
  - Photosensitivity reaction [Unknown]
  - Irritability [Unknown]
  - Chills [Unknown]
  - Pruritus [Unknown]
  - Photophobia [Unknown]
  - Dyskinesia [Unknown]
  - Vertigo [Unknown]
  - Coordination abnormal [Unknown]
